FAERS Safety Report 21302567 (Version 1)
Quarter: 2022Q3

REPORT INFORMATION
  Report Type: Spontaneous
  Country: TW (occurrence: TW)
  Receive Date: 20220907
  Receipt Date: 20220907
  Transmission Date: 20221026
  Serious: Yes (Other)
  Sender: FDA-Public Use
  Company Number: TW-BAYER-2022A122560

PATIENT
  Age: 57 Year
  Sex: Female

DRUGS (1)
  1. STIVARGA [Suspect]
     Active Substance: REGORAFENIB
     Indication: Colorectal cancer metastatic
     Dosage: 80 MG, QD
     Route: 048
     Dates: start: 20211218, end: 202206

REACTIONS (5)
  - Atrial fibrillation [None]
  - Fatigue [None]
  - Diarrhoea [None]
  - Anaemia [None]
  - Off label use [None]

NARRATIVE: CASE EVENT DATE: 20211218
